FAERS Safety Report 20780299 (Version 1)
Quarter: 2022Q2

REPORT INFORMATION
  Report Type: Spontaneous
  Country: US (occurrence: US)
  Receive Date: 20220503
  Receipt Date: 20220503
  Transmission Date: 20220721
  Serious: No
  Sender: FDA-Public Use
  Company Number: US-SANOFI-01084575

PATIENT
  Age: 69 Year
  Sex: Male

DRUGS (6)
  1. DUPIXENT [Suspect]
     Active Substance: DUPILUMAB
     Indication: Nasal polyps
     Dosage: 300 MG, QOW
     Dates: start: 202101
  2. PRAVASTATIN [Concomitant]
     Active Substance: PRAVASTATIN
  3. CLARITHROMYCIN [Concomitant]
     Active Substance: CLARITHROMYCIN
  4. LYRICA [Concomitant]
     Active Substance: PREGABALIN
  5. LOSARTAN [Concomitant]
     Active Substance: LOSARTAN
  6. TAMSULOSIN [Concomitant]
     Active Substance: TAMSULOSIN

REACTIONS (2)
  - Vision blurred [Unknown]
  - Product use in unapproved indication [Unknown]

NARRATIVE: CASE EVENT DATE: 20210101
